FAERS Safety Report 10591010 (Version 2)
Quarter: 2014Q4

REPORT INFORMATION
  Report Type: Report from Study
  Country: BR (occurrence: BR)
  Receive Date: 20141118
  Receipt Date: 20141212
  Transmission Date: 20150529
  Serious: Yes (Other)
  Sender: FDA-Public Use
  Company Number: PHHY2014BR149858

PATIENT
  Sex: Female
  Weight: 43 kg

DRUGS (5)
  1. EXELON PATCH [Suspect]
     Active Substance: RIVASTIGMINE
     Dosage: 13.3 MG, QD (ONE PATCH 27MG/15CM2 DAILY)
     Route: 062
     Dates: start: 201405
  2. CITALOPRAM [Concomitant]
     Active Substance: CITALOPRAM HYDROBROMIDE
     Indication: ANXIETY
     Dosage: 1 DF, QD
     Route: 048
     Dates: start: 201402
  3. DIAZEPAM. [Concomitant]
     Active Substance: DIAZEPAM
     Indication: ANXIETY
     Dosage: 1 DF, QD
     Route: 048
  4. EXELON PATCH [Suspect]
     Active Substance: RIVASTIGMINE
     Indication: DEMENTIA ALZHEIMER^S TYPE
     Dosage: 4.6 MG, QD (ONE PATCH 9MG/5CM2 DAILY)
     Route: 062
     Dates: start: 201402
  5. ROSUVASTATIN [Concomitant]
     Active Substance: ROSUVASTATIN
     Indication: BLOOD CHOLESTEROL ABNORMAL
     Dosage: 1 DF, QHS
     Route: 048

REACTIONS (6)
  - Spinal fracture [Unknown]
  - Fall [Unknown]
  - Osteopenia [Unknown]
  - Gait disturbance [Unknown]
  - Osteoporosis [Unknown]
  - Stubbornness [Not Recovered/Not Resolved]
